FAERS Safety Report 17164606 (Version 2)
Quarter: 2019Q4

REPORT INFORMATION
  Report Type: Spontaneous
  Country: US (occurrence: US)
  Receive Date: 20191217
  Receipt Date: 20191220
  Transmission Date: 20200122
  Serious: No
  Sender: FDA-Public Use
  Company Number: US-PFIZER INC-2019537337

PATIENT
  Age: 95 Year
  Sex: Female
  Weight: 59 kg

DRUGS (1)
  1. GABAPENTIN. [Suspect]
     Active Substance: GABAPENTIN
     Indication: POST HERPETIC NEURALGIA
     Dosage: 400 MG, DAILY (100 MG, ONE IN THE AM, ONE IN THE AFTERNOON AND TWO AT NIGHT)

REACTIONS (10)
  - Gait disturbance [Unknown]
  - Skin exfoliation [Not Recovered/Not Resolved]
  - Body height decreased [Unknown]
  - Ageusia [Unknown]
  - Toothache [Not Recovered/Not Resolved]
  - Anosmia [Unknown]
  - Off label use [Unknown]
  - Drug ineffective [Unknown]
  - Visual impairment [Unknown]
  - Dry skin [Unknown]
